FAERS Safety Report 4424336-3 (Version None)
Quarter: 2004Q3

REPORT INFORMATION
  Report Type: 
  Country: None (occurrence: None)
  Receive Date: 20040806
  Receipt Date: 20040806
  Transmission Date: 20050211
  Serious: Yes (Disabling)
  Sender: FDA-Public Use
  Company Number: None

PATIENT
  Age: 11 Year
  Sex: Female
  Weight: 40.8237 kg

DRUGS (2)
  1. STRATTERA [Suspect]
     Indication: ATTENTION DEFICIT/HYPERACTIVITY DISORDER
     Dosage: 40 MG  DAILY  ORAL
     Route: 048
     Dates: start: 20031021, end: 20031111
  2. STRATTERA [Suspect]
     Dosage: 25  DAILY  ORAL
     Route: 048

REACTIONS (6)
  - ACCOMMODATION DISORDER [None]
  - GLARE [None]
  - HYPERMETROPIA [None]
  - PHOTOPSIA [None]
  - VISION BLURRED [None]
  - VISUAL DISTURBANCE [None]
